FAERS Safety Report 5113964-8 (Version None)
Quarter: 2006Q3

REPORT INFORMATION
  Report Type: 
  Country: None (occurrence: None)
  Receive Date: 20060920
  Receipt Date: 20060907
  Transmission Date: 20061208
  Serious: Yes (Death)
  Sender: FDA-Public Use
  Company Number: 2006BH012279

PATIENT
  Age: 73 Year
  Sex: Male
  Weight: 48 kg

DRUGS (7)
  1. EXTRANEAL [Suspect]
     Indication: RENAL FAILURE CHRONIC
     Dosage: IP; SEE IMAGE
     Route: 033
     Dates: start: 20030101, end: 20030101
  2. EXTRANEAL [Suspect]
     Indication: RENAL FAILURE CHRONIC
     Dosage: IP; SEE IMAGE
     Route: 033
     Dates: start: 20040401, end: 20040901
  3. DIANEAL [Suspect]
     Indication: RENAL FAILURE CHRONIC
     Dosage: IP; SEE IMAGE
     Route: 033
     Dates: start: 19850101, end: 20000101
  4. DIANEAL [Suspect]
     Indication: RENAL FAILURE CHRONIC
     Dosage: IP; SEE IMAGE
     Route: 033
     Dates: start: 20020101, end: 20030101
  5. ALFACALCIDOL [Concomitant]
  6. SEVELAMER HYDROCHLORIDE [Concomitant]
  7. DIPYRIDAMOLE [Concomitant]

REACTIONS (5)
  - ABDOMINAL DISTENSION [None]
  - CATHETER RELATED INFECTION [None]
  - INFLAMMATION [None]
  - SCLEROSING ENCAPSULATING PERITONITIS [None]
  - THERAPY NON-RESPONDER [None]
